FAERS Safety Report 16377085 (Version 1)
Quarter: 2019Q3

REPORT INFORMATION
  Report Type: Spontaneous
  Country: US (occurrence: US)
  Receive Date: 20190530
  Receipt Date: 20190530
  Transmission Date: 20191004
  Serious: No
  Sender: FDA-Public Use
  Company Number: None

PATIENT
  Sex: Female

DRUGS (1)
  1. ZEJULA [Suspect]
     Active Substance: NIRAPARIB
     Indication: OVARIAN CANCER
     Route: 048
     Dates: start: 20180501

REACTIONS (6)
  - Anxiety [None]
  - Carbohydrate antigen 125 increased [None]
  - Therapy cessation [None]
  - Product distribution issue [None]
  - Neoplasm progression [None]
  - Stress [None]
